FAERS Safety Report 4876024-7 (Version None)
Quarter: 2006Q1

REPORT INFORMATION
  Report Type: 
  Country: None (occurrence: None)
  Receive Date: 20060109
  Receipt Date: 20051129
  Transmission Date: 20060701
  Serious: Yes (Other)
  Sender: FDA-Public Use
  Company Number: JP-SANOFI-SYNTHELABO-A01200508525

PATIENT
  Age: 81 Year
  Sex: Female
  Weight: 46 kg

DRUGS (6)
  1. MYSLEE [Suspect]
     Indication: INSOMNIA
     Dosage: 10 MG
     Route: 048
     Dates: start: 20050618, end: 20050619
  2. MYSLEE [Suspect]
     Dosage: 2.5 MG
     Route: 048
     Dates: start: 20051127, end: 20051128
  3. GRANDAXIN [Concomitant]
     Indication: AUTONOMIC NERVOUS SYSTEM IMBALANCE
     Dosage: 150 MG
     Route: 048
     Dates: start: 20050618
  4. BALANCE [Concomitant]
     Indication: AUTONOMIC NERVOUS SYSTEM IMBALANCE
     Dosage: 15 MG
     Route: 048
     Dates: start: 20050618
  5. NULOTAN [Concomitant]
     Indication: HYPERTENSION
     Dosage: 50 MG
     Route: 048
     Dates: start: 20050618
  6. ALPRAZOLAM [Concomitant]
     Indication: AUTONOMIC NERVOUS SYSTEM IMBALANCE
     Dosage: 0.4 MG
     Route: 048
     Dates: start: 20050618

REACTIONS (5)
  - ANTEROGRADE AMNESIA [None]
  - DELIRIUM [None]
  - DEPRESSED LEVEL OF CONSCIOUSNESS [None]
  - FALL [None]
  - PORIOMANIA [None]
